FAERS Safety Report 17095917 (Version 1)
Quarter: 2019Q4

REPORT INFORMATION
  Report Type: Report from Study
  Country: US (occurrence: US)
  Receive Date: 20191202
  Receipt Date: 20191202
  Transmission Date: 20200122
  Serious: Yes (Hospitalization, Other)
  Sender: FDA-Public Use
  Company Number: US-BRISTOL-MYERS SQUIBB COMPANY-BMS-2019-091367

PATIENT
  Age: 56 Year
  Sex: Female
  Weight: 64.2 kg

DRUGS (2)
  1. IPILIMUMAB [Suspect]
     Active Substance: IPILIMUMAB
     Indication: PAPILLARY THYROID CANCER
     Dosage: 1 MILLIGRAM/KILOGRAM
     Route: 042
     Dates: start: 20190708, end: 20190819
  2. NIVOLUMAB [Suspect]
     Active Substance: NIVOLUMAB
     Indication: PAPILLARY THYROID CANCER
     Dosage: 240 MILLIGRAM
     Route: 042
     Dates: start: 20190708, end: 20190819

REACTIONS (3)
  - Diarrhoea [Unknown]
  - Sepsis [Unknown]
  - Dehydration [Recovered/Resolved]

NARRATIVE: CASE EVENT DATE: 20190901
